FAERS Safety Report 7018132-0 (Version None)
Quarter: 2010Q3

REPORT INFORMATION
  Report Type: 
  Country: None (occurrence: None)
  Receive Date: 20100928
  Receipt Date: 20100920
  Transmission Date: 20110219
  Serious: Yes (Hospitalization)
  Sender: FDA-Public Use
  Company Number: CA-ROCHE-726632

PATIENT
  Sex: Female
  Weight: 71.2 kg

DRUGS (3)
  1. BEVACIZUMAB [Suspect]
     Indication: GLIOBLASTOMA MULTIFORME
     Dosage: FORM: INFUSION
     Route: 042
     Dates: start: 20100630
  2. DECADRON [Concomitant]
  3. MEDROXY [Concomitant]

REACTIONS (10)
  - CONVULSION [None]
  - DYSPNOEA [None]
  - FEELING ABNORMAL [None]
  - HYPOAESTHESIA ORAL [None]
  - MALIGNANT NEOPLASM PROGRESSION [None]
  - MUSCLE SPASMS [None]
  - PAIN IN EXTREMITY [None]
  - SKIN ULCER [None]
  - STOMATITIS [None]
  - WHITE BLOOD CELL COUNT ABNORMAL [None]
